FAERS Safety Report 21075569 (Version 1)
Quarter: 2022Q3

REPORT INFORMATION
  Report Type: Spontaneous
  Country: US (occurrence: None)
  Receive Date: 20220712
  Receipt Date: 20220712
  Transmission Date: 20221026
  Serious: Yes (Death)
  Sender: FDA-Public Use
  Company Number: None

PATIENT
  Age: 43 Year
  Sex: Female
  Weight: 63 kg

DRUGS (3)
  1. TAMSULOSIN HYDROCHLORIDE [Suspect]
     Active Substance: TAMSULOSIN HYDROCHLORIDE
     Indication: Nephrolithiasis
     Dosage: OTHER QUANTITY : 1 CAPSULE(S);?FREQUENCY : DAILY;?
     Route: 048
     Dates: start: 20220528, end: 20220530
  2. IBUPROFEN [Concomitant]
     Active Substance: IBUPROFEN
  3. ONDANSETRON [Concomitant]
     Active Substance: ONDANSETRON

REACTIONS (7)
  - Congestive cardiomyopathy [None]
  - Cardiovascular disorder [None]
  - Hypertension [None]
  - Blood pressure decreased [None]
  - Loss of consciousness [None]
  - Respiratory arrest [None]
  - Product use issue [None]

NARRATIVE: CASE EVENT DATE: 20220530
